FAERS Safety Report 24985624 (Version 3)
Quarter: 2025Q2

REPORT INFORMATION
  Report Type: Report from Study
  Country: JP (occurrence: JP)
  Receive Date: 20250219
  Receipt Date: 20250609
  Transmission Date: 20250717
  Serious: Yes (Hospitalization)
  Sender: EISAI
  Company Number: JP-Eisai-202415097_LEQ_P_1

PATIENT
  Age: 80 Year
  Sex: Male
  Weight: 64 kg

DRUGS (8)
  1. LEQEMBI [Suspect]
     Active Substance: LECANEMAB-IRMB
     Indication: Dementia Alzheimer^s type
     Dates: start: 20250207, end: 20250312
  2. DAYVIGO [Concomitant]
     Active Substance: LEMBOREXANT
     Dates: start: 20250207, end: 20250314
  3. TIAPRIDE HYDROCHLORIDE [Concomitant]
     Active Substance: TIAPRIDE HYDROCHLORIDE
     Route: 048
     Dates: start: 20250207, end: 20250314
  4. QUETIAPINE [Concomitant]
     Active Substance: QUETIAPINE
     Dates: start: 20250207, end: 20250314
  5. ZOLPIDEM TARTRATE [Concomitant]
     Active Substance: ZOLPIDEM TARTRATE
     Dates: start: 20250207, end: 20250314
  6. AMLODIPINE [Concomitant]
     Active Substance: AMLODIPINE BESYLATE
     Dates: start: 20250207, end: 20250314
  7. TRAZODONE HYDROCHLORIDE [Concomitant]
     Active Substance: TRAZODONE HYDROCHLORIDE
     Dates: start: 20250207, end: 20250314
  8. ASPIRIN\LANSOPRAZOLE [Concomitant]
     Active Substance: ASPIRIN\LANSOPRAZOLE
     Dates: start: 20250207, end: 20250314

REACTIONS (2)
  - Infusion related reaction [Recovered/Resolved]
  - Abdominal discomfort [Recovered/Resolved]

NARRATIVE: CASE EVENT DATE: 20250207
